FAERS Safety Report 6914716-6 (Version None)
Quarter: 2010Q3

REPORT INFORMATION
  Report Type: 
  Country: None (occurrence: None)
  Receive Date: 20100804
  Receipt Date: 20100804
  Transmission Date: 20110219
  Serious: No
  Sender: FDA-Public Use
  Company Number: None

PATIENT
  Age: 67 Year
  Sex: Male

DRUGS (1)
  1. CETUXIMAB [Suspect]
     Dosage: IV
     Route: 042
     Dates: start: 20090928, end: 20090928

REACTIONS (1)
  - ANAPHYLACTIC REACTION [None]
